FAERS Safety Report 7526353-3 (Version None)
Quarter: 2011Q2

REPORT INFORMATION
  Report Type: 
  Country: None (occurrence: None)
  Receive Date: 20110606
  Receipt Date: 20110602
  Transmission Date: 20111010
  Serious: Yes (Life-Threatening, Hospitalization)
  Sender: FDA-Public Use
  Company Number: BR-ABBOTT-11P-020-0730086-00

PATIENT
  Sex: Male
  Weight: 115 kg

DRUGS (10)
  1. HYDROCHLOROTHIAZIDE [Concomitant]
     Indication: HYPERTENSION
     Route: 048
     Dates: start: 20060101
  2. PAMERGAN [Concomitant]
     Indication: DEPRESSION
     Route: 048
     Dates: start: 20110401
  3. HUMIRA [Suspect]
     Indication: PSORIATIC ARTHROPATHY
     Dosage: INDUCTION DOSE
     Route: 058
     Dates: start: 20091201, end: 20091208
  4. HUMIRA [Suspect]
     Dosage: INDUCTION DOSE, 7 DAYS LATER
     Route: 058
     Dates: start: 20091208, end: 20091215
  5. BROMAZEPAM [Concomitant]
     Indication: DEPRESSION
     Route: 048
     Dates: start: 20110401
  6. METHOTREXATE [Concomitant]
     Indication: PSORIATIC ARTHROPATHY
     Route: 048
     Dates: start: 20110401
  7. VENLAFAXINE [Concomitant]
     Indication: DEPRESSION
     Route: 048
     Dates: start: 20110401
  8. PAROXETINE [Concomitant]
     Indication: DEPRESSION
     Route: 048
     Dates: start: 20090101, end: 20110401
  9. HUMIRA [Suspect]
     Route: 058
     Dates: start: 20091215
  10. CAPTOPRIL [Concomitant]
     Indication: HYPERTENSION
     Dosage: 100MG DAILY, 50MG 2 IN 1 DAY
     Route: 048
     Dates: start: 20060101

REACTIONS (9)
  - PAIN IN EXTREMITY [None]
  - NECK PAIN [None]
  - ARTHRALGIA [None]
  - MUSCULOSKELETAL PAIN [None]
  - SUICIDE ATTEMPT [None]
  - BACK PAIN [None]
  - ARTHRITIS [None]
  - MUSCULOSKELETAL CHEST PAIN [None]
  - MOBILITY DECREASED [None]
